FAERS Safety Report 5746058-9 (Version None)
Quarter: 2008Q2

REPORT INFORMATION
  Report Type: 
  Country: None (occurrence: None)
  Receive Date: 20080519
  Receipt Date: 20080331
  Transmission Date: 20081010
  Serious: No
  Sender: FDA-Public Use
  Company Number: TPA2008A00233

PATIENT
  Age: 68 Year
  Sex: Male
  Weight: 74.8435 kg

DRUGS (10)
  1. ROZEREM [Suspect]
     Indication: CHRONIC FATIGUE SYNDROME
     Dosage: 16 MG, QHS, PER ORAL ; 8 MG, QHS, PER ORAL
     Route: 048
     Dates: start: 20080214, end: 20080215
  2. ROZEREM [Suspect]
     Indication: INSOMNIA
     Dosage: 16 MG, QHS, PER ORAL ; 8 MG, QHS, PER ORAL
     Route: 048
     Dates: start: 20080214, end: 20080215
  3. ROZEREM [Suspect]
     Indication: CHRONIC FATIGUE SYNDROME
     Dosage: 16 MG, QHS, PER ORAL ; 8 MG, QHS, PER ORAL
     Route: 048
     Dates: start: 20080215
  4. ROZEREM [Suspect]
     Indication: INSOMNIA
     Dosage: 16 MG, QHS, PER ORAL ; 8 MG, QHS, PER ORAL
     Route: 048
     Dates: start: 20080215
  5. DIAZEPAM [Concomitant]
  6. WELLBUTRIN XL [Concomitant]
  7. ZETIA [Concomitant]
  8. MIDODRINE HYDROCHLORIDE [Concomitant]
  9. ALLEGRA [Concomitant]
  10. LUNESTA [Concomitant]

REACTIONS (3)
  - INITIAL INSOMNIA [None]
  - MIDDLE INSOMNIA [None]
  - OVERDOSE [None]
